FAERS Safety Report 5779306-X (Version None)
Quarter: 2008Q2

REPORT INFORMATION
  Report Type: 
  Country: None (occurrence: None)
  Receive Date: 20080601
  Receipt Date: 20080106
  Transmission Date: 20081010
  Serious: No
  Sender: FDA-Public Use
  Company Number: US200801001031

PATIENT
  Age: 67 Year
  Sex: Female
  Weight: 90.7 kg

DRUGS (16)
  1. BYETTA [Suspect]
     Indication: TYPE 2 DIABETES MELLITUS
     Dosage: 5 UG, 2/D, SUBCUTANEOUS; 10 UG, 2/D, SUBCUTANEOUS
     Route: 058
     Dates: start: 20070701, end: 20070901
  2. BYETTA [Suspect]
     Indication: TYPE 2 DIABETES MELLITUS
     Dosage: 5 UG, 2/D, SUBCUTANEOUS; 10 UG, 2/D, SUBCUTANEOUS
     Route: 058
     Dates: start: 20070901
  3. EXENATIDE 5MCG PEN, DISPOSABLE DEVICE [Concomitant]
  4. EXENATIDE 10MCG PEN, DISPOSABLE DEVICE (EXENATIDE PEN (10MCG) [Concomitant]
  5. GLYBURIDE [Concomitant]
  6. METFORMIN HCL [Concomitant]
  7. WARFARIN SODIUM [Concomitant]
  8. HYDROCHLOROTHIAZIDE [Concomitant]
  9. TRICOR [Concomitant]
  10. METOPROLOL TARTRATE [Concomitant]
  11. VYTORIN [Concomitant]
  12. TERAZOSIN HCL [Concomitant]
  13. LOTREL [Concomitant]
  14. ASPIRIN [Concomitant]
  15. PRILOSEC [Concomitant]
  16. FISH OIL (FISH OIL) [Concomitant]

REACTIONS (2)
  - BLOOD GLUCOSE INCREASED [None]
  - DIZZINESS [None]
